FAERS Safety Report 25355496 (Version 1)
Quarter: 2025Q2

REPORT INFORMATION
  Report Type: Spontaneous
  Country: US (occurrence: US)
  Receive Date: 20250525
  Receipt Date: 20250525
  Transmission Date: 20250717
  Serious: No
  Sender: VIIV
  Company Number: US-VIIV HEALTHCARE-US2025AMR064417

PATIENT
  Age: 49 Year
  Sex: Male

DRUGS (1)
  1. DOVATO [Suspect]
     Active Substance: DOLUTEGRAVIR SODIUM\LAMIVUDINE
     Indication: Product used for unknown indication

REACTIONS (1)
  - Weight increased [Unknown]
